FAERS Safety Report 9204645 (Version 1)
Quarter: 2013Q2

REPORT INFORMATION
  Report Type: Spontaneous
  Country: US (occurrence: US)
  Receive Date: 20130402
  Receipt Date: 20130402
  Transmission Date: 20140414
  Serious: Yes (Hospitalization)
  Sender: FDA-Public Use
  Company Number: US-UCBSA-080310

PATIENT
  Age: 51 Year
  Sex: Female
  Weight: 77.11 kg

DRUGS (9)
  1. CIMZIA [Suspect]
     Indication: RHEUMATOID ARTHRITIS
     Dosage: NO OF DOSES:3
     Route: 058
     Dates: start: 201301
  2. PREDNISONE [Suspect]
  3. LEVOXYL [Concomitant]
  4. ASPIRIN [Concomitant]
  5. ESTRADIOL [Concomitant]
  6. LISINOPRIL [Concomitant]
  7. PRILOSEC [Concomitant]
  8. ZOCOR [Concomitant]
  9. VITAMIN D [Concomitant]

REACTIONS (3)
  - Malaise [Not Recovered/Not Resolved]
  - Chest pain [Unknown]
  - Gastrooesophageal reflux disease [Unknown]
